FAERS Safety Report 8417425-X (Version None)
Quarter: 2012Q2

REPORT INFORMATION
  Report Type: 
  Country: None (occurrence: None)
  Receive Date: 20120606
  Receipt Date: 20120531
  Transmission Date: 20120825
  Serious: Yes (Other)
  Sender: FDA-Public Use
  Company Number: CA-PFIZER INC-2012132132

PATIENT
  Age: 55 Year
  Sex: Female

DRUGS (1)
  1. PREMARIN [Suspect]
     Dosage: UNK

REACTIONS (6)
  - HOT FLUSH [None]
  - ALOPECIA [None]
  - FORMICATION [None]
  - WEIGHT INCREASED [None]
  - MENTAL IMPAIRMENT [None]
  - INSOMNIA [None]
